FAERS Safety Report 4806691-5 (Version None)
Quarter: 2005Q4

REPORT INFORMATION
  Report Type: 
  Country: None (occurrence: None)
  Receive Date: 20051019
  Receipt Date: 20051005
  Transmission Date: 20060501
  Serious: Yes (Death)
  Sender: FDA-Public Use
  Company Number: USA0506100407

PATIENT
  Age: 78 Year
  Sex: Female

DRUGS (6)
  1. FORTEO [Suspect]
     Indication: OSTEOPOROSIS
     Dates: start: 20031001
  2. ZYPREXA [Suspect]
  3. MULTI-VITAMINS [Concomitant]
  4. CALCIUM WITH VITAMIN D [Concomitant]
  5. IRON SUPPLEMENT [Concomitant]
  6. DEPAKOTE [Concomitant]

REACTIONS (4)
  - HAEMATEMESIS [None]
  - HYPOVENTILATION [None]
  - INCREASED UPPER AIRWAY SECRETION [None]
  - RESPIRATORY RATE INCREASED [None]
